FAERS Safety Report 4610785-7 (Version None)
Quarter: 2005Q2

REPORT INFORMATION
  Report Type: 
  Country: None (occurrence: None)
  Receive Date: 20050223
  Receipt Date: 20040303
  Transmission Date: 20051028
  Serious: Yes (Other)
  Sender: FDA-Public Use
  Company Number: WAES98071662

PATIENT
  Age: 71 Year
  Sex: Male
  Weight: 98.4306 kg

DRUGS (17)
  1. ZOCOR [Suspect]
     Indication: HYPERCHOLESTEROLAEMIA
     Dosage: 20; 30 MG/ DAILY/ PO
     Route: 048
     Dates: start: 19980601, end: 19990111
  2. ZOCOR [Suspect]
     Indication: HYPERLIPIDAEMIA
     Dosage: 20; 30 MG/ DAILY/ PO
     Route: 048
     Dates: start: 19980601, end: 19990111
  3. ZOCOR [Suspect]
     Indication: HYPERCHOLESTEROLAEMIA
     Dosage: 20; 30 MG/ DAILY/ PO
     Route: 048
     Dates: start: 20020806, end: 20020901
  4. ZOCOR [Suspect]
     Indication: HYPERLIPIDAEMIA
     Dosage: 20; 30 MG/ DAILY/ PO
     Route: 048
     Dates: start: 20020806, end: 20020901
  5. ZOCOR [Suspect]
     Indication: HYPERCHOLESTEROLAEMIA
     Dosage: 20; 30 MG/ DAILY/ PO
     Route: 048
     Dates: start: 20020901, end: 20021001
  6. ZOCOR [Suspect]
     Indication: HYPERLIPIDAEMIA
     Dosage: 20; 30 MG/ DAILY/ PO
     Route: 048
     Dates: start: 20020901, end: 20021001
  7. ZOCOR [Suspect]
     Indication: HYPERCHOLESTEROLAEMIA
     Dosage: 20 MG/ PO
     Route: 048
     Dates: start: 20021001
  8. ZOCOR [Suspect]
     Indication: HYPERLIPIDAEMIA
     Dosage: 20 MG/ PO
     Route: 048
     Dates: start: 20021001
  9. ZETIA [Suspect]
     Dosage: PO
     Route: 048
  10. QUESTRAN [Concomitant]
  11. ASCORBIC ACID [Concomitant]
  12. ASPIRIN [Concomitant]
  13. VITAMINS [Concomitant]
  14. . [Concomitant]
  15. . [Concomitant]
  16. . [Concomitant]
  17. . [Concomitant]

REACTIONS (12)
  - ARTHRALGIA [None]
  - ASTHENIA [None]
  - BLOOD CREATINE PHOSPHOKINASE INCREASED [None]
  - DIFFICULTY IN WALKING [None]
  - FALL [None]
  - GENERAL SYMPTOM [None]
  - MUSCLE SPASMS [None]
  - MUSCULAR WEAKNESS [None]
  - MYALGIA [None]
  - MYOPATHY [None]
  - PAIN IN EXTREMITY [None]
  - RHABDOMYOLYSIS [None]
